FAERS Safety Report 7943822-2 (Version None)
Quarter: 2011Q4

REPORT INFORMATION
  Report Type: 
  Country: None (occurrence: None)
  Receive Date: 20111128
  Receipt Date: 20111118
  Transmission Date: 20120403
  Serious: Yes (Death, Hospitalization, Disabling)
  Sender: FDA-Public Use
  Company Number: GB-ROCHE-764784

PATIENT
  Sex: Female
  Weight: 50 kg

DRUGS (5)
  1. MORPHINE [Concomitant]
  2. RITUXIMAB [Suspect]
     Indication: B-CELL LYMPHOMA
  3. BENDAMUSTINE [Suspect]
     Indication: B-CELL LYMPHOMA
     Dates: start: 20100601, end: 20101201
  4. SILDENAFIL [Suspect]
     Indication: PULMONARY FIBROSIS
     Route: 042
     Dates: start: 20110211, end: 20110214
  5. MIDAZOLAM [Concomitant]

REACTIONS (3)
  - HYPOTENSION [None]
  - PULMONARY FIBROSIS [None]
  - PULMONARY HYPERTENSION [None]
